FAERS Safety Report 18328711 (Version 1)
Quarter: 2020Q3

REPORT INFORMATION
  Report Type: Spontaneous
  Country: CA (occurrence: CA)
  Receive Date: 20200930
  Receipt Date: 20200930
  Transmission Date: 20201103
  Serious: Yes (Hospitalization)
  Sender: FDA-Public Use
  Company Number: CA-ACCORD-203344

PATIENT
  Age: 73 Year
  Sex: Male
  Weight: 78 kg

DRUGS (20)
  1. METHOTREXATE. [Suspect]
     Active Substance: METHOTREXATE
     Indication: MUSCULOSKELETAL PAIN
     Route: 048
  2. ACETAMINOPHEN. [Concomitant]
     Active Substance: ACETAMINOPHEN
  3. TAMSULOSIN [Concomitant]
     Active Substance: TAMSULOSIN
     Route: 065
  4. ACTEMRA [Suspect]
     Active Substance: TOCILIZUMAB
     Indication: RHEUMATOID ARTHRITIS
     Route: 042
  5. CODEINE [Concomitant]
     Active Substance: CODEINE
  6. METFORMIN [Concomitant]
     Active Substance: METFORMIN HYDROCHLORIDE
     Dosage: 2 EVERY 1 DAYS
     Route: 065
  7. ROSUVASTATIN. [Concomitant]
     Active Substance: ROSUVASTATIN
     Dosage: 1 EVERY 1 DAYS
     Route: 065
  8. GLICLAZIDE [Concomitant]
     Active Substance: GLICLAZIDE
     Route: 065
  9. SILDENAFIL. [Concomitant]
     Active Substance: SILDENAFIL
     Route: 065
  10. METFORMIN [Concomitant]
     Active Substance: METFORMIN HYDROCHLORIDE
     Dosage: 2 EVERY 1 DAYS
     Route: 065
  11. AVAMYS [Concomitant]
     Active Substance: FLUTICASONE FUROATE
     Dosage: 2 EVERY 1 DAYS
     Route: 065
  12. ROSUVASTATIN. [Concomitant]
     Active Substance: ROSUVASTATIN
     Dosage: 1 EVERY 1 DAYS
     Route: 048
  13. ALENDRONIC ACID [Concomitant]
     Active Substance: ALENDRONIC ACID
     Dosage: 1 EVERY 1 WEEKS
     Route: 065
  14. ACTEMRA [Suspect]
     Active Substance: TOCILIZUMAB
     Indication: RHEUMATOID ARTHRITIS
     Route: 042
  15. ACETYLSALICYLIC ACID [Concomitant]
     Active Substance: ASPIRIN
     Dosage: 1 EVERY 1 DAYS
     Route: 065
  16. OMEGA?3 ACIDS [Concomitant]
     Active Substance: OMEGA-3 FATTY ACIDS
     Dosage: 1 EVERY 1 DAYS
     Route: 065
  17. GLICLAZIDE [Concomitant]
     Active Substance: GLICLAZIDE
     Dosage: 1 EVERY 1 DAYS
     Route: 048
  18. CAFFEINE/CAFFEINE CITRATE [Concomitant]
     Active Substance: CAFFEINE CITRATE
  19. NICOTINAMIDE/PYRIDOXINE HYDROCHLORIDE/TYROSINE [Concomitant]
     Dosage: 1 EVERY 1 DAYS
     Route: 065
  20. RABEPRAZOLE/RABEPRAZOLE SODIUM [Concomitant]
     Active Substance: RABEPRAZOLE SODIUM
     Dosage: 1 EVERY 1 DAYS
     Route: 048

REACTIONS (15)
  - Rash pruritic [Recovered/Resolved]
  - Arthralgia [Recovered/Resolved]
  - Diverticulitis [Recovered/Resolved]
  - Weight decreased [Recovered/Resolved]
  - Blood pressure increased [Recovered/Resolved]
  - Blood pressure systolic increased [Recovered/Resolved]
  - Heart rate decreased [Recovered/Resolved]
  - Middle insomnia [Recovered/Resolved]
  - Oropharyngeal pain [Recovered/Resolved]
  - Blood pressure diastolic decreased [Recovered/Resolved]
  - Infusion related reaction [Recovered/Resolved]
  - Lower respiratory tract infection [Recovered/Resolved]
  - Musculoskeletal pain [Recovered/Resolved]
  - Blood pressure diastolic increased [Recovered/Resolved]
  - Weight increased [Recovered/Resolved]
